FAERS Safety Report 11345163 (Version 1)
Quarter: 2015Q3

REPORT INFORMATION
  Report Type: Spontaneous
  Country: US (occurrence: None)
  Receive Date: 20150805
  Receipt Date: 20150805
  Transmission Date: 20151125
  Serious: No
  Sender: FDA-Public Use
  Company Number: None

PATIENT
  Age: 74 Year
  Sex: Female

DRUGS (8)
  1. DEXAMEHASONE [Concomitant]
  2. INSULIN [Concomitant]
     Active Substance: INSULIN NOS
  3. PHENOBARBITAL. [Concomitant]
     Active Substance: PHENOBARBITAL
  4. AMPHOTERICIN B. [Suspect]
     Active Substance: AMPHOTERICIN B
     Indication: MENINGITIS
     Route: 042
     Dates: start: 20141108, end: 20141128
  5. FENTANYL. [Concomitant]
     Active Substance: FENTANYL
  6. PSYLLIUM [Concomitant]
     Active Substance: PLANTAGO SEED
  7. AMLODIPINE [Concomitant]
     Active Substance: AMLODIPINE BESYLATE
  8. FLUCYTOSINE. [Concomitant]
     Active Substance: FLUCYTOSINE

REACTIONS (2)
  - Metabolic acidosis [None]
  - Renal tubular acidosis [None]

NARRATIVE: CASE EVENT DATE: 20141117
